FAERS Safety Report 19007182 (Version 1)
Quarter: 2021Q1

REPORT INFORMATION
  Report Type: Spontaneous
  Country: US (occurrence: US)
  Receive Date: 20210315
  Receipt Date: 20210315
  Transmission Date: 20210420
  Serious: Yes (Hospitalization, Other)
  Sender: FDA-Public Use
  Company Number: None

PATIENT
  Age: 55 Year
  Sex: Male
  Weight: 133.3 kg

DRUGS (1)
  1. CASIRIVIMAB?IMDEVIMAB [Suspect]
     Active Substance: CASIRIVIMAB\IMDEVIMAB
     Indication: COVID-19
     Dosage: ?          OTHER FREQUENCY:ONCE;?
     Route: 042
     Dates: start: 20210308, end: 20210308

REACTIONS (4)
  - Chest pain [None]
  - Blood glucose increased [None]
  - Anticoagulation drug level above therapeutic [None]
  - Dyspnoea [None]

NARRATIVE: CASE EVENT DATE: 20210311
